FAERS Safety Report 6727526-X (Version None)
Quarter: 2010Q2

REPORT INFORMATION
  Report Type: 
  Country: None (occurrence: None)
  Receive Date: 20100517
  Receipt Date: 20100503
  Transmission Date: 20101027
  Serious: Yes (Other)
  Sender: FDA-Public Use
  Company Number: PHHY2010US25588

PATIENT
  Sex: Male

DRUGS (5)
  1. EXFORGE [Suspect]
     Indication: HYPERTENSION
     Dosage: TABLET (320/5 MG) DAILY
     Dates: start: 20100308, end: 20100315
  2. CLINDAGEL [Concomitant]
     Dosage: 1 %, APPLY TO UPPER BACK, QD-PRN
     Dates: start: 20030729
  3. PRAVACHOL [Concomitant]
     Dosage: 20 MG, UNK
     Dates: start: 20030729
  4. SEPTRA DS [Concomitant]
     Dosage: TABLET (160 MG), BID
     Route: 048
     Dates: start: 20100416
  5. TRIAMCINOLONE ACETONIDE [Concomitant]
     Dosage: 0.1 %, BID-PRN
     Dates: start: 20100329

REACTIONS (20)
  - ABDOMINAL PAIN [None]
  - BIOPSY [None]
  - DERMATITIS CONTACT [None]
  - DIARRHOEA [None]
  - DRY SKIN [None]
  - ECZEMA [None]
  - ERYTHEMA [None]
  - LEUKOCYTOCLASTIC VASCULITIS [None]
  - NAUSEA [None]
  - NEOPLASM SKIN [None]
  - PAIN IN EXTREMITY [None]
  - PRURITUS [None]
  - PURPURA [None]
  - RASH [None]
  - RASH PAPULAR [None]
  - SCAB [None]
  - SKIN BURNING SENSATION [None]
  - SKIN EXFOLIATION [None]
  - STEVENS-JOHNSON SYNDROME [None]
  - WEIGHT DECREASED [None]
